FAERS Safety Report 5091939-5 (Version None)
Quarter: 2006Q3

REPORT INFORMATION
  Report Type: 
  Country: None (occurrence: None)
  Receive Date: 20060825
  Receipt Date: 20060810
  Transmission Date: 20061208
  Serious: Yes (Life-Threatening, Hospitalization, Disabling)
  Sender: FDA-Public Use
  Company Number: 104396

PATIENT
  Age: 49 Year

DRUGS (5)
  1. DAIVOBET [Suspect]
     Indication: PSORIASIS
     Dosage: 2 APPLICATION (1 APPLICATION, 2 IN 1 D) TO
     Route: 061
  2. APOMORPHINE [Concomitant]
  3. CABERGOLINE [Concomitant]
  4. FLUCLOXACILLIN [Concomitant]
  5. QUETIAPINE FUMARATE [Concomitant]

REACTIONS (6)
  - ACUTE RESPIRATORY DISTRESS SYNDROME [None]
  - ENTEROCOCCAL INFECTION [None]
  - GENERAL PHYSICAL HEALTH DETERIORATION [None]
  - PUSTULAR PSORIASIS [None]
  - STAPHYLOCOCCAL INFECTION [None]
  - THERAPY NON-RESPONDER [None]
